FAERS Safety Report 7053995-4 (Version None)
Quarter: 2010Q4

REPORT INFORMATION
  Report Type: 
  Country: None (occurrence: None)
  Receive Date: 20101020
  Receipt Date: 20101008
  Transmission Date: 20110411
  Serious: Yes (Other)
  Sender: FDA-Public Use
  Company Number: US-MERCK-1010USA00967

PATIENT
  Age: 8 Year
  Sex: Male
  Weight: 33 kg

DRUGS (6)
  1. SINGULAIR [Suspect]
     Indication: ASTHMA
     Route: 048
  2. ADVAIR DISKUS 100/50 [Concomitant]
     Indication: ASTHMA
     Route: 065
     Dates: start: 20100301
  3. XOPENEX [Concomitant]
     Indication: ASTHMA
     Route: 065
     Dates: start: 20031001
  4. BENADRYL [Concomitant]
     Indication: HYPERSENSITIVITY
     Route: 065
  5. LOCOID [Concomitant]
     Indication: ECZEMA
     Route: 065
  6. ZYRTEC [Concomitant]
     Indication: HYPERSENSITIVITY
     Route: 048
     Dates: start: 20100901

REACTIONS (3)
  - ABNORMAL BEHAVIOUR [None]
  - SUICIDAL BEHAVIOUR [None]
  - SUICIDAL IDEATION [None]
